FAERS Safety Report 5215289-9 (Version None)
Quarter: 2007Q1

REPORT INFORMATION
  Report Type: 
  Country: None (occurrence: None)
  Receive Date: 20070117
  Receipt Date: 20070102
  Transmission Date: 20070707
  Serious: Yes (Other)
  Sender: FDA-Public Use
  Company Number: 2007SP000083

PATIENT
  Age: 56 Year
  Sex: Male

DRUGS (5)
  1. TEMODAL [Suspect]
     Indication: GLIOBLASTOMA MULTIFORME
     Dosage: PO
     Route: 048
     Dates: start: 20061113, end: 20061117
  2. TEMODAL [Suspect]
     Indication: GLIOBLASTOMA MULTIFORME
     Dosage: PO
     Route: 048
     Dates: start: 20060501
  3. OMEPRAZOLE (CON.) [Concomitant]
  4. BETAPRED (CON.) [Concomitant]
  5. RADIATION THERAPY (CON.) [Concomitant]

REACTIONS (4)
  - DEAFNESS NEUROSENSORY [None]
  - FATIGUE [None]
  - HEARING IMPAIRED [None]
  - RASH MACULO-PAPULAR [None]
